FAERS Safety Report 4902194-8 (Version None)
Quarter: 2006Q1

REPORT INFORMATION
  Report Type: 
  Country: None (occurrence: None)
  Receive Date: 20060207
  Receipt Date: 20060126
  Transmission Date: 20060701
  Serious: Yes (Hospitalization)
  Sender: FDA-Public Use
  Company Number: US-JNJFOC-20051003787

PATIENT
  Age: 14 Month
  Sex: Female

DRUGS (7)
  1. CONCENTRATED MOTRIN INFANTS' [Suspect]
  2. CONCENTRATED MOTRIN INFANTS' [Suspect]
     Indication: TEETHING
     Dosage: ^THROUGH THE WEEK^
  3. IRON [Concomitant]
     Indication: DRUG USE FOR UNKNOWN INDICATION
  4. TYLENOL [Concomitant]
  5. SEPTRA [Concomitant]
  6. SEPTRA [Concomitant]
     Indication: PROPHYLAXIS
  7. VITAMINS [Concomitant]
     Indication: DRUG USE FOR UNKNOWN INDICATION

REACTIONS (3)
  - IMPAIRED HEALING [None]
  - POST PROCEDURAL URINE LEAK [None]
  - VESICOURETERIC REFLUX [None]
